FAERS Safety Report 14470276 (Version 2)
Quarter: 2018Q1

REPORT INFORMATION
  Report Type: Spontaneous
  Country: AT (occurrence: AT)
  Receive Date: 20180131
  Receipt Date: 20180213
  Transmission Date: 20180509
  Serious: Yes (Other)
  Sender: FDA-Public Use
  Company Number: AT-GLAXOSMITHKLINE-AT2018GSK014713

PATIENT
  Sex: Male

DRUGS (2)
  1. CUROCEF [Suspect]
     Active Substance: CEFUROXIME SODIUM
     Dosage: 1500 MG, UNK
     Dates: start: 20111220, end: 20111220
  2. CUROCEF [Suspect]
     Active Substance: CEFUROXIME SODIUM
     Indication: PROPHYLAXIS
     Dosage: 1500 MG, UNK
     Dates: start: 20111206, end: 20111206

REACTIONS (2)
  - Staphylococcal infection [Unknown]
  - Drug ineffective [Unknown]

NARRATIVE: CASE EVENT DATE: 20120104
